FAERS Safety Report 4933001-5 (Version None)
Quarter: 2006Q1

REPORT INFORMATION
  Report Type: 
  Country: None (occurrence: None)
  Receive Date: 20060302
  Receipt Date: 20060302
  Transmission Date: 20060701
  Serious: Yes (Life-Threatening, Hospitalization)
  Sender: FDA-Public Use
  Company Number: None

PATIENT
  Age: 67 Year
  Sex: Female
  Weight: 72.5755 kg

DRUGS (1)
  1. LIDOCAINE [Suspect]
     Indication: SKIN ULCER
     Dosage: ONCE DAILY
     Dates: start: 20030828, end: 20031001

REACTIONS (2)
  - IMPAIRED HEALING [None]
  - ULCER [None]
